FAERS Safety Report 14690271 (Version 1)
Quarter: 2018Q1

REPORT INFORMATION
  Report Type: Spontaneous
  Country: GR (occurrence: GR)
  Receive Date: 20180328
  Receipt Date: 20180328
  Transmission Date: 20180509
  Serious: Yes (Hospitalization, Other)
  Sender: FDA-Public Use
  Company Number: GR-MYLANLABS-2018M1018038

PATIENT
  Age: 70 Year
  Sex: Male

DRUGS (8)
  1. NITROGLYCERINE [Concomitant]
     Active Substance: NITROGLYCERIN
     Indication: NITRATE COMPOUND THERAPY
  2. RAMIPRIL. [Suspect]
     Active Substance: RAMIPRIL
     Indication: DRUG THERAPY
     Dosage: UNK
  3. DIGOXIN. [Suspect]
     Active Substance: DIGOXIN
     Indication: PRODUCT USED FOR UNKNOWN INDICATION
  4. EPLERENONE. [Suspect]
     Active Substance: EPLERENONE
     Indication: DIURETIC THERAPY
  5. CARVEDILOL. [Suspect]
     Active Substance: CARVEDILOL
     Indication: DRUG THERAPY
     Dosage: UNK
  6. GLYCERYL TRINITRATE [Suspect]
     Active Substance: NITROGLYCERIN
     Indication: NITRATE COMPOUND THERAPY
     Dosage: UNK
  7. RIVAROXABAN [Concomitant]
     Active Substance: RIVAROXABAN
     Indication: DRUG THERAPY
     Dosage: UNK
  8. FUROSEMIDE. [Suspect]
     Active Substance: FUROSEMIDE
     Indication: DIURETIC THERAPY
     Dosage: UNK

REACTIONS (12)
  - Normochromic anaemia [Unknown]
  - Fatigue [Unknown]
  - Pulmonary arterial pressure increased [Unknown]
  - Drug ineffective [Unknown]
  - Cardiac failure [Unknown]
  - Bundle branch block left [Unknown]
  - Ejection fraction decreased [Unknown]
  - Renal impairment [Unknown]
  - Atrial fibrillation [Unknown]
  - Disease progression [Unknown]
  - Orthopnoea [Unknown]
  - Dyspnoea [Unknown]
